FAERS Safety Report 14038507 (Version 3)
Quarter: 2018Q1

REPORT INFORMATION
  Report Type: Spontaneous
  Country: US (occurrence: US)
  Receive Date: 20171004
  Receipt Date: 20180221
  Transmission Date: 20180508
  Serious: Yes (Disabling, Congenital Anomaly, Other)
  Sender: FDA-Public Use
  Company Number: US-PFIZER INC-2017421280

PATIENT
  Sex: Female

DRUGS (1)
  1. TAPAZOLE [Suspect]
     Active Substance: METHIMAZOLE
     Indication: HYPERTHYROIDISM
     Dosage: UNK
     Route: 064

REACTIONS (6)
  - Heart rate decreased [Unknown]
  - Microphthalmos [Not Recovered/Not Resolved]
  - Congenital eye disorder [Not Recovered/Not Resolved]
  - Maternal exposure during pregnancy [Unknown]
  - Retinal anomaly congenital [Not Recovered/Not Resolved]
  - Blindness congenital [Not Recovered/Not Resolved]

NARRATIVE: CASE EVENT DATE: 20170818
